FAERS Safety Report 10866939 (Version 2)
Quarter: 2015Q2

REPORT INFORMATION
  Report Type: Report from Study
  Country: FR (occurrence: FR)
  Receive Date: 20150225
  Receipt Date: 20150414
  Transmission Date: 20150821
  Serious: Yes (Life-Threatening, Hospitalization, Other)
  Sender: FDA-Public Use
  Company Number: FR-ACTELION-A-CH2014-099752

PATIENT
  Age: 13 Year
  Sex: Female
  Weight: 28.9 kg

DRUGS (2)
  1. REVATIO [Concomitant]
     Active Substance: SILDENAFIL CITRATE
     Dosage: UNK
     Dates: start: 20110207
  2. TRACLEER [Suspect]
     Active Substance: BOSENTAN\BOSENTAN MONOHYDRATE
     Indication: PULMONARY ARTERIAL HYPERTENSION
     Dosage: 24 MG, BID
     Route: 048
     Dates: start: 20110207

REACTIONS (5)
  - Balloon atrial septostomy [Recovered/Resolved]
  - Dyspnoea [Recovered/Resolved with Sequelae]
  - Oxygen saturation decreased [Unknown]
  - Tracheal plastic repair [Recovered/Resolved]
  - Tracheal stenosis [Recovered/Resolved with Sequelae]

NARRATIVE: CASE EVENT DATE: 20131103
